FAERS Safety Report 5457371-7 (Version None)
Quarter: 2007Q3

REPORT INFORMATION
  Report Type: 
  Country: None (occurrence: None)
  Receive Date: 20070918
  Receipt Date: 20070906
  Transmission Date: 20080115
  Serious: Yes (Hospitalization, Other)
  Sender: FDA-Public Use
  Company Number: JP-PFIZER INC-2007070732

PATIENT
  Sex: Male

DRUGS (3)
  1. SULPERAZON [Suspect]
     Indication: DIVERTICULITIS
     Route: 042
     Dates: start: 20070726, end: 20070801
  2. VOLTAREN [Suspect]
     Indication: ANALGESIA
     Route: 054
     Dates: start: 20070726, end: 20070801
  3. VITANEURIN FOR INJECTION [Concomitant]
     Route: 042
     Dates: start: 20070726, end: 20070801

REACTIONS (2)
  - GENERALISED ERYTHEMA [None]
  - PLATELET COUNT DECREASED [None]
